FAERS Safety Report 5938018-X (Version None)
Quarter: 2008Q4

REPORT INFORMATION
  Report Type: 
  Country: None (occurrence: None)
  Receive Date: 20081031
  Receipt Date: 20081020
  Transmission Date: 20090506
  Serious: Yes (Disabling)
  Sender: FDA-Public Use
  Company Number: NO-PFIZER INC-2008087899

PATIENT
  Sex: Female

DRUGS (2)
  1. ZYVOXID TABLET [Suspect]
     Indication: SKIN INFECTION
     Route: 048
     Dates: start: 20070801
  2. PREDNISOLONE [Interacting]
     Indication: AUTOIMMUNE HEPATITIS
     Route: 048

REACTIONS (1)
  - TENDON RUPTURE [None]
